FAERS Safety Report 6820591-0 (Version None)
Quarter: 2010Q3

REPORT INFORMATION
  Report Type: 
  Country: None (occurrence: None)
  Receive Date: 20100707
  Receipt Date: 20100629
  Transmission Date: 20110219
  Serious: Yes (Death)
  Sender: FDA-Public Use
  Company Number: A0868831A

PATIENT
  Age: 53 Year
  Sex: Male

DRUGS (1)
  1. AROPAX [Suspect]
     Indication: DEPRESSION
     Dosage: 20MG TWICE PER DAY
     Route: 048
     Dates: start: 20100601, end: 20100601

REACTIONS (2)
  - ABDOMINAL DISCOMFORT [None]
  - COMPLETED SUICIDE [None]
